FAERS Safety Report 10479696 (Version 4)
Quarter: 2014Q4

REPORT INFORMATION
  Report Type: Spontaneous
  Country: JP (occurrence: JP)
  Receive Date: 20140927
  Receipt Date: 20141024
  Transmission Date: 20150528
  Serious: Yes (Hospitalization, Other)
  Sender: FDA-Public Use
  Company Number: PHHY2014JP116237

PATIENT
  Age: 49 Year
  Sex: Male
  Weight: 59 kg

DRUGS (13)
  1. CLOZARIL [Suspect]
     Active Substance: CLOZAPINE
     Dosage: 600 MG, DAILY
     Route: 048
     Dates: start: 2014
  2. ROHYPNOL [Concomitant]
     Active Substance: FLUNITRAZEPAM
     Indication: INSOMNIA
     Dosage: 2 MG
     Route: 048
     Dates: end: 20140904
  3. DAIKENCHUTO [Concomitant]
     Active Substance: HERBALS
     Indication: CONSTIPATION
     Dosage: 7.5 G
     Route: 048
     Dates: end: 20140904
  4. MAGNESIUM OXIDE. [Concomitant]
     Active Substance: MAGNESIUM OXIDE
     Indication: CONSTIPATION
     Dosage: 2.5 G
     Route: 048
     Dates: end: 20140904
  5. CLOZARIL [Suspect]
     Active Substance: CLOZAPINE
     Indication: SCHIZOPHRENIA
     Dosage: 12.5 MG, DAILY
     Route: 048
     Dates: start: 20120207
  6. CLOZARIL [Suspect]
     Active Substance: CLOZAPINE
     Dosage: 600 MG, DAILY
     Route: 048
     Dates: start: 20140826, end: 20140904
  7. BIO-THREE [Concomitant]
     Active Substance: HERBALS
     Indication: CONSTIPATION
     Dosage: 3 DF
     Route: 048
     Dates: end: 20140904
  8. OXYGEN. [Concomitant]
     Active Substance: OXYGEN
     Indication: PRODUCT USED FOR UNKNOWN INDICATION
     Route: 065
  9. SEDIEL [Concomitant]
     Active Substance: TANDOSPIRONE
     Indication: RESTLESSNESS
     Dosage: 60 MG
     Route: 048
     Dates: end: 20140904
  10. LAMICTAL [Concomitant]
     Active Substance: LAMOTRIGINE
     Indication: RESTLESSNESS
     Dosage: 400 MG
     Route: 048
     Dates: end: 20140904
  11. STRATTERA [Concomitant]
     Active Substance: ATOMOXETINE HYDROCHLORIDE
     Indication: RESTLESSNESS
     Dosage: 80 MG
     Route: 048
     Dates: end: 20140904
  12. THYRADIN S [Concomitant]
     Active Substance: LEVOTHYROXINE SODIUM
     Indication: HYPOTHYROIDISM
     Dosage: 100 UG
     Route: 048
     Dates: end: 20140904
  13. PANTOSIN [Concomitant]
     Active Substance: PANTETHINE
     Indication: CONSTIPATION
     Dosage: 600 MG
     Route: 048
     Dates: end: 20140904

REACTIONS (9)
  - Pneumonia aspiration [Recovered/Resolved]
  - White blood cell count increased [Recovered/Resolved]
  - Aggression [Unknown]
  - Vomiting [Unknown]
  - Seizure [Unknown]
  - Gastrointestinal motility disorder [Unknown]
  - Abdominal distension [Unknown]
  - Ileus [Recovered/Resolved]
  - Hypophagia [Unknown]

NARRATIVE: CASE EVENT DATE: 20140901
